FAERS Safety Report 13666809 (Version 1)
Quarter: 2017Q2

REPORT INFORMATION
  Report Type: Spontaneous
  Country: US (occurrence: US)
  Receive Date: 20170619
  Receipt Date: 20170619
  Transmission Date: 20170830
  Serious: No
  Sender: FDA-Public Use
  Company Number: US-ROCHE-1300419

PATIENT
  Sex: Female

DRUGS (3)
  1. BENADRYL [Concomitant]
     Active Substance: DIPHENHYDRAMINE HYDROCHLORIDE
  2. XELODA [Suspect]
     Active Substance: CAPECITABINE
     Indication: PRODUCT USED FOR UNKNOWN INDICATION
     Dosage: 7 D ON 7 D OFF
     Route: 048
     Dates: start: 20130908
  3. AVAPRO [Concomitant]
     Active Substance: IRBESARTAN

REACTIONS (5)
  - Abdominal pain upper [Unknown]
  - Paraesthesia [Unknown]
  - Photopsia [Unknown]
  - Hypoaesthesia [Unknown]
  - Pain in extremity [Unknown]
